FAERS Safety Report 24205239 (Version 1)
Quarter: 2024Q3

REPORT INFORMATION
  Report Type: Spontaneous
  Country: PT (occurrence: PT)
  Receive Date: 20240813
  Receipt Date: 20240813
  Transmission Date: 20241016
  Serious: Yes (Disabling, Other)
  Sender: BAYER
  Company Number: None

PATIENT
  Age: 29 Year
  Sex: Female
  Weight: 65 kg

DRUGS (1)
  1. MIRENA [Suspect]
     Active Substance: LEVONORGESTREL
     Indication: Contraception
     Dosage: 20?G/DAY
     Route: 015
     Dates: start: 20190630, end: 20240630

REACTIONS (3)
  - Migraine [Not Recovered/Not Resolved]
  - Visual field defect [Not Recovered/Not Resolved]
  - Central vision loss [Not Recovered/Not Resolved]

NARRATIVE: CASE EVENT DATE: 20210101
